FAERS Safety Report 16965544 (Version 3)
Quarter: 2019Q4

REPORT INFORMATION
  Report Type: Report from Study
  Country: US (occurrence: US)
  Receive Date: 20191028
  Receipt Date: 20191231
  Transmission Date: 20200122
  Serious: Yes (Life-Threatening, Other)
  Sender: FDA-Public Use
  Company Number: NVSC2019US017854

PATIENT
  Age: 66 Year
  Sex: Female
  Weight: 107.85 kg

DRUGS (3)
  1. ENTRESTO [Suspect]
     Active Substance: SACUBITRIL\VALSARTAN
     Indication: CARDIOMYOPATHY
     Dosage: 1 DF (49 MG OF SACUBITRIL AND 51 MG OF VALSARTAN)
     Route: 048
     Dates: start: 20161006
  2. COREX [Concomitant]
     Indication: PRODUCT USED FOR UNKNOWN INDICATION
     Dosage: 25 MG  (TITRATED), BID
     Route: 048
  3. LASIX [Concomitant]
     Active Substance: FUROSEMIDE
     Indication: PRODUCT USED FOR UNKNOWN INDICATION
     Dosage: 40 MG, QD
     Route: 048

REACTIONS (5)
  - Syncope [Recovered/Resolved with Sequelae]
  - Product use in unapproved indication [Unknown]
  - Loss of consciousness [Unknown]
  - Autonomic failure syndrome [Unknown]
  - Hypotension [Recovered/Resolved with Sequelae]

NARRATIVE: CASE EVENT DATE: 20161006
